FAERS Safety Report 11469573 (Version 1)
Quarter: 2015Q3

REPORT INFORMATION
  Report Type: Spontaneous
  Country: US (occurrence: US)
  Receive Date: 20150908
  Receipt Date: 20150908
  Transmission Date: 20151125
  Serious: No
  Sender: FDA-Public Use
  Company Number: US-GLAXOSMITHKLINE-US2015125531

PATIENT
  Age: 41 Year
  Sex: Female

DRUGS (24)
  1. NITROGLYCERINE [Concomitant]
     Active Substance: NITROGLYCERIN
  2. RESTASIS [Concomitant]
     Active Substance: CYCLOSPORINE
  3. VITAMIN B12 [Concomitant]
     Active Substance: CYANOCOBALAMIN
  4. CEVIMELINE. [Concomitant]
     Active Substance: CEVIMELINE
  5. LINZESS [Concomitant]
     Active Substance: LINACLOTIDE
  6. NEXIUM [Concomitant]
     Active Substance: ESOMEPRAZOLE MAGNESIUM
  7. ACZONE [Concomitant]
     Active Substance: DAPSONE
  8. DILTIAZEM [Concomitant]
     Active Substance: DILTIAZEM
  9. LYRICA [Concomitant]
     Active Substance: PREGABALIN
  10. VITAMIN C [Concomitant]
     Active Substance: ASCORBIC ACID
  11. LEFLUNOMIDE. [Concomitant]
     Active Substance: LEFLUNOMIDE
  12. TEMAZEPAM. [Concomitant]
     Active Substance: TEMAZEPAM
  13. BENLYSTA [Suspect]
     Active Substance: BELIMUMAB
     Indication: SYSTEMIC LUPUS ERYTHEMATOSUS
     Dosage: UNK UNK, CYC
     Route: 042
     Dates: start: 2013
  14. SUMATRIPTAN. [Concomitant]
     Active Substance: SUMATRIPTAN
  15. CITRACAL + D [Concomitant]
     Active Substance: CALCIUM CITRATE\VITAMIN D
  16. KERATIN [Concomitant]
     Active Substance: KERATIN
  17. FOLIC ACID. [Concomitant]
     Active Substance: FOLIC ACID
  18. HYDROCODINE [Concomitant]
  19. LORATIDINE [Concomitant]
     Active Substance: LORATADINE
  20. METOPROLOL [Concomitant]
     Active Substance: METOPROLOL
  21. SAVELLA [Concomitant]
     Active Substance: MILNACIPRAN HYDROCHLORIDE
  22. TOPIRAMATE. [Concomitant]
     Active Substance: TOPIRAMATE
  23. HYDROXYCHLOROQUINE [Concomitant]
     Active Substance: HYDROXYCHLOROQUINE
  24. HYOSCYAMINE SULFATE. [Concomitant]
     Active Substance: HYOSCYAMINE SULFATE

REACTIONS (3)
  - Mobility decreased [Recovering/Resolving]
  - Intervertebral disc protrusion [Not Recovered/Not Resolved]
  - Back pain [Not Recovered/Not Resolved]

NARRATIVE: CASE EVENT DATE: 20150801
